FAERS Safety Report 13373551 (Version 1)
Quarter: 2017Q1

REPORT INFORMATION
  Report Type: Spontaneous
  Country: US (occurrence: US)
  Receive Date: 20170324
  Receipt Date: 20170324
  Transmission Date: 20170429
  Serious: Yes (Life-Threatening)
  Sender: FDA-Public Use
  Company Number: None

PATIENT
  Age: 53 Year
  Sex: Male

DRUGS (1)
  1. IOVERSOL [Suspect]
     Active Substance: IOVERSOL
     Indication: PULMONARY EMBOLISM
     Route: 042
     Dates: start: 20170210, end: 20170210

REACTIONS (2)
  - Asthma [None]
  - Dyspnoea [None]

NARRATIVE: CASE EVENT DATE: 20170210
